FAERS Safety Report 4993514-7 (Version None)
Quarter: 2006Q2

REPORT INFORMATION
  Report Type: 
  Country: None (occurrence: None)
  Receive Date: 20060504
  Receipt Date: 20060504
  Transmission Date: 20061013
  Serious: Yes (Other)
  Sender: FDA-Public Use
  Company Number: None

PATIENT
  Age: 41 Year
  Sex: Female
  Weight: 98.8842 kg

DRUGS (1)
  1. TOFRANIL [Suspect]
     Indication: MIGRAINE
     Dosage: 100 MG 1 PO
     Route: 048
     Dates: start: 20060201, end: 20060301

REACTIONS (13)
  - ANXIETY [None]
  - CONDITION AGGRAVATED [None]
  - DELUSION [None]
  - DRUG INEFFECTIVE [None]
  - FRUSTRATION [None]
  - INSOMNIA [None]
  - MIGRAINE [None]
  - PALPITATIONS [None]
  - PARAESTHESIA [None]
  - PRURITUS [None]
  - SINUSITIS [None]
  - URTICARIA [None]
  - VISUAL DISTURBANCE [None]
